FAERS Safety Report 13542771 (Version 1)
Quarter: 2017Q2

REPORT INFORMATION
  Report Type: Spontaneous
  Country: US (occurrence: US)
  Receive Date: 20170512
  Receipt Date: 20170512
  Transmission Date: 20170830
  Serious: No
  Sender: FDA-Public Use
  Company Number: US-ROCHE-706908

PATIENT
  Age: 65 Year
  Sex: Female
  Weight: 57 kg

DRUGS (2)
  1. AVASTIN [Suspect]
     Active Substance: BEVACIZUMAB
     Indication: COLORECTAL CANCER METASTATIC
     Dosage: DATES FOR USE: SEVERAL YEARS TILL APRIL 2010. DOSE REPORTED: 2.5 MG/KG/WEEK.
     Route: 042
     Dates: start: 200801, end: 20100428
  2. XELODA [Suspect]
     Active Substance: CAPECITABINE
     Indication: COLORECTAL CANCER METASTATIC
     Dosage: DATES OF USE: 18 MONTHS, FREQUENCY: BID (TWICE DAILY)X 14 ON/ 7 DAYS.
     Route: 048

REACTIONS (1)
  - Visual impairment [Unknown]

NARRATIVE: CASE EVENT DATE: 201004
